FAERS Safety Report 18547336 (Version 3)
Quarter: 2021Q4

REPORT INFORMATION
  Report Type: Report from Study
  Country: DE (occurrence: None)
  Receive Date: 20201126
  Receipt Date: 20211102
  Transmission Date: 20220303
  Serious: Yes (Hospitalization)
  Sender: FDA-Public Use
  Company Number: DE-ROCHE-2718643

PATIENT
  Age: 55 Year
  Sex: Male
  Weight: 87 kg

DRUGS (5)
  1. ATEZOLIZUMAB [Suspect]
     Active Substance: ATEZOLIZUMAB
     Indication: Oesophageal adenocarcinoma
     Dosage: MOST RECENT DOSE OF ATEZOLIZUMAB ON 19/NOV/2020
     Route: 041
  2. DOCETAXEL [Suspect]
     Active Substance: DOCETAXEL
     Indication: Oesophageal adenocarcinoma
     Dosage: OVER 1 HOUR?MOST RECENT DOSE OF DOCETAXEL (81.2 MG) ON 19/NOV/2020
     Route: 042
  3. OXALIPLATIN [Suspect]
     Active Substance: OXALIPLATIN
     Indication: Oesophageal adenocarcinoma
     Dosage: OVER 2 HOURS?MOST RECENT DOSE OF OXALIPLATIN (138.04 MG) ON 19/NOV/2020
     Route: 042
  4. FLUOROURACIL [Suspect]
     Active Substance: FLUOROURACIL
     Indication: Oesophageal adenocarcinoma
     Dosage: OVER 24 HOURS?MOST RECENT DOSE OF FLUOROURACIL (4243.2 MG) ON 05/NOV/2020
     Route: 042
  5. LEUCOVORIN [Suspect]
     Active Substance: LEUCOVORIN
     Indication: Oesophageal adenocarcinoma
     Dosage: OVER 1 HOUR?MOST RECENT DOSE OF LEUCOVORIN (324.8 MG) ON 19/NOV/2020
     Route: 042

REACTIONS (1)
  - Hypersensitivity [Recovered/Resolved]

NARRATIVE: CASE EVENT DATE: 20201119
